FAERS Safety Report 8531655-8 (Version None)
Quarter: 2012Q3

REPORT INFORMATION
  Report Type: 
  Country: None (occurrence: None)
  Receive Date: 20120723
  Receipt Date: 20120712
  Transmission Date: 20120928
  Serious: Yes (Other)
  Sender: FDA-Public Use
  Company Number: JP-VERTEX PHARMACEUTICALS INC.-AE-2012-009725

PATIENT
  Age: 63 Year
  Sex: Male

DRUGS (3)
  1. REBETOL [Concomitant]
     Route: 048
     Dates: start: 20120621
  2. TELAVIC (TELAPREVIR) [Suspect]
     Route: 048
     Dates: start: 20120621, end: 20120625
  3. PEG-INTRON [Concomitant]
     Route: 058
     Dates: start: 20120621

REACTIONS (2)
  - RASH [None]
  - DRUG ERUPTION [None]
